FAERS Safety Report 6931176-X (Version None)
Quarter: 2010Q3

REPORT INFORMATION
  Report Type: 
  Country: None (occurrence: None)
  Receive Date: 20100818
  Receipt Date: 20100803
  Transmission Date: 20110219
  Serious: Yes (Other)
  Sender: FDA-Public Use
  Company Number: PHHY2010ES50585

PATIENT
  Age: 59 Year
  Sex: Male

DRUGS (4)
  1. TRILEPTAL [Suspect]
     Indication: EPILEPSY
     Dosage: 1200 MG, BID
     Dates: start: 20100404, end: 20100422
  2. HALOPERIDOL [Concomitant]
     Dosage: UNK
     Dates: start: 20100101
  3. VALPROIC ACID [Concomitant]
     Dosage: UNK
     Dates: start: 20100101
  4. LEVETIRACETAM [Concomitant]
     Indication: EPILEPSY
     Dosage: 1500 MG, QD
     Dates: start: 20100101

REACTIONS (1)
  - INAPPROPRIATE ANTIDIURETIC HORMONE SECRETION [None]
